FAERS Safety Report 4662456-9 (Version None)
Quarter: 2005Q2

REPORT INFORMATION
  Report Type: 
  Country: None (occurrence: None)
  Receive Date: 20050513
  Receipt Date: 20050513
  Transmission Date: 20051028
  Serious: Yes (Death, Hospitalization)
  Sender: FDA-Public Use
  Company Number: None

PATIENT
  Age: 74 Year
  Sex: Female
  Weight: 56 kg

DRUGS (2)
  1. XELODA [Suspect]
     Indication: COLON CANCER METASTATIC
     Dosage: 1300MG  BID ORAL
     Route: 048
     Dates: start: 20050124, end: 20050224
  2. IRINOTECAN  240MG/M2  PFIZER [Suspect]
     Indication: COLON CANCER METASTATIC
     Dosage: 377MG   ONCE Q 3 WEEKS  INTRAVENOUS
     Route: 042
     Dates: start: 20050124, end: 20050214

REACTIONS (5)
  - ATRIAL FIBRILLATION [None]
  - DEHYDRATION [None]
  - DYSPNOEA [None]
  - LEUKOPENIA [None]
  - RESPIRATORY FAILURE [None]
